FAERS Safety Report 9759631 (Version 2)
Quarter: 2013Q4

REPORT INFORMATION
  Report Type: Spontaneous
  Country: US (occurrence: US)
  Receive Date: 20131216
  Receipt Date: 20131216
  Transmission Date: 20140711
  Serious: Yes (Hospitalization)
  Sender: FDA-Public Use
  Company Number: US-GILEAD-2010-0028177

PATIENT
  Age: 56 Year
  Sex: Male
  Weight: 95.5 kg

DRUGS (6)
  1. LETAIRIS [Suspect]
     Indication: PULMONARY ARTERIAL HYPERTENSION
     Route: 048
     Dates: start: 20090606
  2. REVATIO [Concomitant]
  3. FUROSEMIDE [Concomitant]
  4. OXYCOD/APAP [Concomitant]
  5. GLYBURIDE [Concomitant]
  6. SIMVASTATIN [Concomitant]

REACTIONS (1)
  - Red blood cell count decreased [Unknown]
